FAERS Safety Report 8776449 (Version 1)
Quarter: 2012Q4

REPORT INFORMATION
  Report Type: 
  Country: US (occurrence: US)
  Receive Date: 20120910
  Receipt Date: 20120910
  Transmission Date: 20130627
  Serious: Yes (Hospitalization)
  Sender: FDA-Public Use
  Company Number: PHHY2012US076815

PATIENT
  Age: 54 Year
  Sex: Male

DRUGS (3)
  1. ALPRAZOLAM [Suspect]
  2. COCAINE [Suspect]
  3. OXYCODONE HYDROCHLORIDE [Suspect]

REACTIONS (11)
  - Leukoencephalopathy [Recovered/Resolved]
  - Unresponsive to stimuli [Recovered/Resolved]
  - Disorientation [Recovered/Resolved]
  - Agitation [Recovered/Resolved]
  - Speech disorder [Recovered/Resolved]
  - Somnolence [Recovered/Resolved]
  - Respiratory arrest [Recovered/Resolved]
  - Acidosis [Recovered/Resolved]
  - Hypoxia [Unknown]
  - Pneumonia aspiration [Recovered/Resolved]
  - Overdose [Unknown]
